FAERS Safety Report 10449931 (Version 2)
Quarter: 2014Q3

REPORT INFORMATION
  Report Type: Spontaneous
  Country: US (occurrence: US)
  Receive Date: 20140912
  Receipt Date: 20140912
  Transmission Date: 20150326
  Serious: No
  Sender: FDA-Public Use
  Company Number: US-INCYTE CORPORATION-2014IN001724

PATIENT
  Age: 69 Year
  Sex: Female

DRUGS (16)
  1. CIPROFLOXACIN. [Concomitant]
     Active Substance: CIPROFLOXACIN
  2. ZOLPIDEM [Concomitant]
     Active Substance: ZOLPIDEM\ZOLPIDEM TARTRATE
  3. CARNITINE [Concomitant]
     Active Substance: CARNITINE
  4. AMLODIPINE [Suspect]
     Active Substance: AMLODIPINE BESYLATE
     Dosage: NOT SPECIFIED
     Dates: start: 20140616
  5. CLINDAMYCIN [Suspect]
     Active Substance: CLINDAMYCIN\CLINDAMYCIN PHOSPHATE
     Indication: DENTAL CARE
     Dosage: NOT SPECIFIED
  6. CALCIUM [Concomitant]
     Active Substance: CALCIUM
  7. UBIQUINOL [Concomitant]
  8. POLICOSANOL [Concomitant]
  9. METOPROLOL [Concomitant]
     Active Substance: METOPROLOL
  10. MULTIVITAMIN                       /00097801/ [Concomitant]
     Active Substance: VITAMINS
  11. JAKAFI [Suspect]
     Active Substance: RUXOLITINIB
     Dosage: 2.5 MG, BID
     Route: 048
     Dates: start: 20140721
  12. ASPIRIN. [Concomitant]
     Active Substance: ASPIRIN
     Dosage: 81 MG, UNK
  13. LEVOTHYROXINE [Concomitant]
     Active Substance: LEVOTHYROXINE
  14. JAKAFI [Suspect]
     Active Substance: RUXOLITINIB
     Indication: MYELOFIBROSIS
     Dosage: 5 MG BID
     Route: 048
     Dates: start: 20140407, end: 20140711
  15. VITAMIN D2 [Concomitant]
     Active Substance: ERGOCALCIFEROL
  16. OMEGA 3                            /01334101/ [Concomitant]
     Active Substance: OMEGA-3 FATTY ACIDS

REACTIONS (6)
  - Swelling [Not Recovered/Not Resolved]
  - Pallor [Not Recovered/Not Resolved]
  - Wrong technique in drug usage process [Unknown]
  - Fall [Not Recovered/Not Resolved]
  - Pruritus [Not Recovered/Not Resolved]
  - Contusion [Not Recovered/Not Resolved]

NARRATIVE: CASE EVENT DATE: 20140616
